FAERS Safety Report 4405607-3 (Version None)
Quarter: 2004Q3

REPORT INFORMATION
  Report Type: 
  Country: None (occurrence: None)
  Receive Date: 20040723
  Receipt Date: 20031016
  Transmission Date: 20050211
  Serious: No
  Sender: FDA-Public Use
  Company Number: US-GLAXOSMITHKLINE-A0430622A

PATIENT
  Age: 83 Year
  Sex: Female
  Weight: 53.6 kg

DRUGS (11)
  1. AVANDIA [Suspect]
     Dosage: 4MG PER DAY
     Route: 048
     Dates: start: 20031003
  2. GLUCOPHAGE [Concomitant]
     Dosage: 1500MG PER DAY
  3. LASIX [Concomitant]
  4. STARLIX [Concomitant]
  5. LOPID [Concomitant]
  6. DIOVAN [Concomitant]
  7. DIGOXIN [Concomitant]
  8. CALCIUM [Concomitant]
  9. VITAMIN [Concomitant]
  10. MINIPRESS [Concomitant]
     Dosage: 1MG TWICE PER DAY
  11. ATENOLOL [Concomitant]

REACTIONS (2)
  - BLOOD PRESSURE DECREASED [None]
  - OEDEMA PERIPHERAL [None]
